FAERS Safety Report 18042381 (Version 1)
Quarter: 2020Q3

REPORT INFORMATION
  Report Type: Spontaneous
  Country: US (occurrence: US)
  Receive Date: 20200720
  Receipt Date: 20200720
  Transmission Date: 20201103
  Serious: Yes (Hospitalization, Other)
  Sender: FDA-Public Use
  Company Number: US-ABBVIE-20K-163-3484762-00

PATIENT
  Age: 68 Year
  Sex: Male
  Weight: 70.37 kg

DRUGS (7)
  1. HUMIRA [Suspect]
     Active Substance: ADALIMUMAB
     Indication: ANKYLOSING SPONDYLITIS
     Route: 058
     Dates: start: 2019, end: 202005
  2. HUMIRA [Suspect]
     Active Substance: ADALIMUMAB
     Route: 058
     Dates: start: 202006
  3. CLINDAMYCIN. [Concomitant]
     Active Substance: CLINDAMYCIN
     Indication: PRODUCT USED FOR UNKNOWN INDICATION
  4. COSENTYX [Suspect]
     Active Substance: SECUKINUMAB
     Indication: PRODUCT USED FOR UNKNOWN INDICATION
     Route: 065
     Dates: end: 2019
  5. DILTIAZEM. [Concomitant]
     Active Substance: DILTIAZEM
     Indication: COLITIS ULCERATIVE
  6. ANDROGEL [Concomitant]
     Active Substance: TESTOSTERONE
     Indication: HYPOGONADISM
  7. ZITHROMYCIN [Concomitant]
     Active Substance: AZITHROMYCIN ANHYDROUS
     Indication: PRODUCT USED FOR UNKNOWN INDICATION

REACTIONS (14)
  - Malaise [Not Recovered/Not Resolved]
  - Productive cough [Not Recovered/Not Resolved]
  - Blood pressure fluctuation [Recovering/Resolving]
  - Colitis ulcerative [Not Recovered/Not Resolved]
  - Heart rate irregular [Recovering/Resolving]
  - Tooth abscess [Recovered/Resolved]
  - Upper respiratory tract infection [Recovered/Resolved]
  - Dyspnoea [Not Recovered/Not Resolved]
  - Asthenia [Not Recovered/Not Resolved]
  - Fungal skin infection [Recovered/Resolved]
  - Toothache [Recovered/Resolved]
  - Cough [Recovered/Resolved]
  - Atrial fibrillation [Not Recovered/Not Resolved]
  - Nasal obstruction [Not Recovered/Not Resolved]

NARRATIVE: CASE EVENT DATE: 202003
